FAERS Safety Report 6713207-5 (Version None)
Quarter: 2010Q2

REPORT INFORMATION
  Report Type: 
  Country: None (occurrence: None)
  Receive Date: 20100506
  Receipt Date: 20100426
  Transmission Date: 20101027
  Serious: Yes (Other)
  Sender: FDA-Public Use
  Company Number: PHHY2010DE27219

PATIENT
  Age: 7 Year
  Sex: Male
  Weight: 25 kg

DRUGS (5)
  1. RITALIN [Suspect]
     Indication: ATTENTION DEFICIT/HYPERACTIVITY DISORDER
     Dosage: 10 MG IN THE MORNING, 5 MG IN THE AFTERNOON
     Route: 048
     Dates: end: 20100401
  2. RITALIN [Suspect]
     Dosage: 2.5 MG, DAILY
     Route: 048
     Dates: start: 20100401
  3. SALBUTAMOL [Concomitant]
     Indication: ASTHMA
     Dosage: IF NEEDED
  4. CORTISONE [Concomitant]
     Indication: ASTHMA
  5. CETIRIZINE HCL [Concomitant]
     Indication: ASTHMA

REACTIONS (3)
  - DELIRIUM [None]
  - PANIC REACTION [None]
  - PARAESTHESIA [None]
